FAERS Safety Report 5692697-3 (Version None)
Quarter: 2008Q2

REPORT INFORMATION
  Report Type: 
  Country: None (occurrence: None)
  Receive Date: 20080401
  Receipt Date: 20080319
  Transmission Date: 20081010
  Serious: Yes (Other)
  Sender: FDA-Public Use
  Company Number: US023034

PATIENT
  Age: 52 Year
  Sex: Female

DRUGS (2)
  1. PROVIGIL [Suspect]
     Indication: FATIGUE
     Dosage: 100 MG QD ORAL
     Route: 048
     Dates: start: 20080101, end: 20080101
  2. PROVIGIL [Suspect]
     Indication: MULTIPLE SCLEROSIS
     Dosage: 100 MG QD ORAL
     Route: 048
     Dates: start: 20080101, end: 20080101

REACTIONS (1)
  - PARALYSIS [None]
